FAERS Safety Report 16890065 (Version 2)
Quarter: 2025Q1

REPORT INFORMATION
  Report Type: Spontaneous
  Country: DE (occurrence: DE)
  Receive Date: 20191007
  Receipt Date: 20250331
  Transmission Date: 20250409
  Serious: Yes (Hospitalization, Congenital Anomaly, Other)
  Sender: JOHNSON AND JOHNSON
  Company Number: DE-EMBRYOTOX-201805511

PATIENT
  Age: 0 Year
  Sex: Female
  Weight: 3.4 kg

DRUGS (7)
  1. REMICADE [Suspect]
     Active Substance: INFLIXIMAB
     Indication: Colitis ulcerative
     Route: 064
  2. AZATHIOPRINE [Concomitant]
     Active Substance: AZATHIOPRINE
     Indication: Colitis ulcerative
     Dosage: 100 [MG/D ]
     Route: 064
     Dates: start: 20180422, end: 20180516
  3. mayra [Concomitant]
     Indication: Oral contraception
     Dosage: 0.03 [MG/D ] / 2 [MG/D ]? 0. - 5. GESTATIONAL WEEK
     Route: 064
  4. FOLS?URE [Concomitant]
     Indication: Prophylaxis of neural tube defect
     Route: 064
  5. PREDNISOLONE [Concomitant]
     Active Substance: PREDNISOLONE
     Indication: Colitis ulcerative
     Route: 064
  6. PREDNISOLONE [Concomitant]
     Active Substance: PREDNISOLONE
     Dosage: 33.6. - 36.6. GESTATIONAL WEEK
     Route: 064
  7. salofalk [Concomitant]
     Indication: Colitis ulcerative
     Route: 064

REACTIONS (4)
  - Otitis media [Recovered/Resolved]
  - Respiratory syncytial virus infection [Recovered/Resolved]
  - Atrial septal defect [Recovered/Resolved]
  - Foetal exposure during pregnancy [Unknown]
